FAERS Safety Report 16956166 (Version 2)
Quarter: 2019Q4

REPORT INFORMATION
  Report Type: Spontaneous
  Country: US (occurrence: US)
  Receive Date: 20191024
  Receipt Date: 20191104
  Transmission Date: 20200122
  Serious: Yes (Other)
  Sender: FDA-Public Use
  Company Number: US-TORRENT-00009389

PATIENT
  Sex: Female
  Weight: 82 kg

DRUGS (9)
  1. ELIQUIS [Concomitant]
     Active Substance: APIXABAN
     Indication: ANTICOAGULANT THERAPY
     Dosage: STARTED IN 2018
     Route: 048
     Dates: start: 2018
  2. METOPROLOL. [Concomitant]
     Active Substance: METOPROLOL
     Indication: GASTROOESOPHAGEAL REFLUX DISEASE
     Dosage: TAKING QUITE A LONG TIME
     Route: 048
  3. GABAPENTIN. [Concomitant]
     Active Substance: GABAPENTIN
     Indication: PAIN
     Route: 048
     Dates: start: 20190930
  4. VITAMIN D [Concomitant]
     Active Substance: VITAMIN D NOS
     Indication: BONE DISORDER
     Dosage: TAKING OVER YEARS, ONE TIME PER DAY
     Route: 048
  5. LOSARTAN AND HYDROCHLOROTHIAZIDE [Suspect]
     Active Substance: HYDROCHLOROTHIAZIDE\LOSARTAN POTASSIUM
     Indication: HYPERTENSION
     Dosage: 50/12.5 MG PER DAY, TAKING FROM LAST 20+ YEARS
     Route: 048
  6. ATORVASTATIN [Concomitant]
     Active Substance: ATORVASTATIN
     Indication: DYSLIPIDAEMIA
     Dosage: TAKING OVER YEARS
     Route: 048
  7. OMEPRAZOLE. [Concomitant]
     Active Substance: OMEPRAZOLE
     Indication: GASTROOESOPHAGEAL REFLUX DISEASE
     Dosage: TAKING FOR FEW YEARS NOW
     Route: 048
  8. SYNTHROID [Concomitant]
     Active Substance: LEVOTHYROXINE SODIUM
     Indication: THYROID DISORDER
     Dosage: IT WAS STOPPED ON 2018
     Route: 048
     Dates: end: 2018
  9. LISINOPRIL. [Concomitant]
     Active Substance: LISINOPRIL
     Indication: HYPERTENSION
     Dosage: STARTED IN 2018
     Route: 048
     Dates: start: 2018

REACTIONS (5)
  - Neck pain [Not Recovered/Not Resolved]
  - Thyroid disorder [Unknown]
  - Thyroid operation [Unknown]
  - Pain in extremity [Not Recovered/Not Resolved]
  - Pain [Not Recovered/Not Resolved]
